FAERS Safety Report 20373880 (Version 1)
Quarter: 2022Q1

REPORT INFORMATION
  Report Type: Spontaneous
  Country: DE (occurrence: DE)
  Receive Date: 20220125
  Receipt Date: 20220125
  Transmission Date: 20220423
  Serious: Yes (Hospitalization)
  Sender: FDA-Public Use
  Company Number: None

PATIENT
  Age: 82 Year
  Sex: Male
  Weight: 77 kg

DRUGS (9)
  1. METHOTREXATE [Suspect]
     Active Substance: METHOTREXATE
     Indication: Product used for unknown indication
     Dosage: 15 MG, SCHEME
     Route: 058
  2. DEXAMETHASONE\NEOMYCIN [Concomitant]
     Active Substance: DEXAMETHASONE\NEOMYCIN
     Dosage: SCHEME, DROPS
  3. APIXABAN [Concomitant]
     Active Substance: APIXABAN
     Dosage: 5 MG, 1-0-1-0
  4. GENTAMICIN [Concomitant]
     Active Substance: GENTAMICIN
     Dosage: SCHEME, DROPS
  5. ALLOPURINOL [Concomitant]
     Active Substance: ALLOPURINOL
     Dosage: 100 MG, 1-0-0-0
  6. METOPROLOL [Concomitant]
     Active Substance: METOPROLOL
     Dosage: 47.5 MG, 1-0-1-0
  7. PIRACETAM [Concomitant]
     Active Substance: PIRACETAM
     Dosage: 1200 MG, 1-1-1-0
  8. IRBESARTAN AND HYDROCHLOROTHIAZIDE [Concomitant]
     Active Substance: HYDROCHLOROTHIAZIDE\IRBESARTAN
     Dosage: 150, 12.5 MG, 1-0-0-0
  9. ATORVASTATIN [Concomitant]
     Active Substance: ATORVASTATIN
     Dosage: 10 MG, 0-0-1-0

REACTIONS (14)
  - Anaemia [Unknown]
  - Dry skin [Unknown]
  - Hypotension [Unknown]
  - Dyspnoea [Unknown]
  - Weight decreased [Unknown]
  - Dizziness [Unknown]
  - Dehydration [Unknown]
  - Headache [Unknown]
  - Presyncope [Unknown]
  - Renal impairment [Unknown]
  - General physical health deterioration [Unknown]
  - Musculoskeletal pain [Unknown]
  - Cough [Unknown]
  - Systemic infection [Unknown]
